FAERS Safety Report 5908933-1 (Version None)
Quarter: 2008Q4

REPORT INFORMATION
  Report Type: 
  Country: None (occurrence: None)
  Receive Date: 20081006
  Receipt Date: 20080930
  Transmission Date: 20090506
  Serious: Yes (Other)
  Sender: FDA-Public Use
  Company Number: BR-ASTRAZENECA-2007UW18790

PATIENT
  Age: 70 Year
  Sex: Male

DRUGS (2)
  1. ATACAND [Suspect]
     Indication: HYPERTENSION
     Route: 048
     Dates: start: 20010101, end: 20070731
  2. ATACAND [Suspect]
     Route: 048
     Dates: start: 20070801

REACTIONS (6)
  - BLOOD PRESSURE INCREASED [None]
  - HERNIA [None]
  - HERNIA REPAIR [None]
  - MEMORY IMPAIRMENT [None]
  - POLLAKIURIA [None]
  - PROSTATECTOMY [None]
